FAERS Safety Report 6593015-9 (Version None)
Quarter: 2010Q1

REPORT INFORMATION
  Report Type: 
  Country: None (occurrence: None)
  Receive Date: 20100218
  Receipt Date: 20100218
  Transmission Date: 20100710
  Serious: Yes (Other)
  Sender: FDA-Public Use
  Company Number: None

PATIENT
  Sex: Female
  Weight: 56.8 kg

DRUGS (2)
  1. BACLOFEN [Suspect]
     Indication: MUSCLE SPASMS
     Dosage: 10 MG 2 X'S DAILY ORAL
     Route: 048
     Dates: start: 20080101, end: 20100101
  2. BACLOFEN [Suspect]
     Indication: PAIN
     Dosage: 10 MG 2 X'S DAILY ORAL
     Route: 048
     Dates: start: 20080101, end: 20100101

REACTIONS (6)
  - ANXIETY [None]
  - BACK PAIN [None]
  - DRUG HYPERSENSITIVITY [None]
  - HALLUCINATION, AUDITORY [None]
  - MALAISE [None]
  - PARANOIA [None]
